FAERS Safety Report 19978205 (Version 1)
Quarter: 2021Q4

REPORT INFORMATION
  Report Type: Spontaneous
  Country: US (occurrence: US)
  Receive Date: 20211020
  Receipt Date: 20211020
  Transmission Date: 20220303
  Serious: No
  Sender: FDA-Public Use
  Company Number: None

PATIENT
  Age: 56 Year
  Sex: Female

DRUGS (1)
  1. CAPECITABINE [Suspect]
     Active Substance: CAPECITABINE
     Dosage: OTHER FREQUENCY:OTHER;
     Route: 048
     Dates: start: 202109

REACTIONS (2)
  - Fall [None]
  - Wrist fracture [None]

NARRATIVE: CASE EVENT DATE: 20211011
